FAERS Safety Report 13264558 (Version 2)
Quarter: 2017Q1

REPORT INFORMATION
  Report Type: Spontaneous
  Country: US (occurrence: US)
  Receive Date: 20170223
  Receipt Date: 20170325
  Transmission Date: 20170428
  Serious: Yes (Hospitalization, Other)
  Sender: FDA-Public Use
  Company Number: US-AMGEN-USASP2017023689

PATIENT
  Age: 58 Year
  Sex: Female
  Weight: 80.74 kg

DRUGS (1)
  1. REPATHA [Suspect]
     Active Substance: EVOLOCUMAB
     Indication: BLOOD CHOLESTEROL INCREASED
     Dosage: 140 MG, Q2WK
     Route: 065
     Dates: start: 20160220, end: 20160308

REACTIONS (18)
  - Cardiac operation [Unknown]
  - Malaise [Unknown]
  - Urinary tract infection [Unknown]
  - Dark circles under eyes [Unknown]
  - Dizziness [Unknown]
  - Fatigue [Unknown]
  - Upper respiratory tract infection [Unknown]
  - Cardiac failure [Unknown]
  - Eye disorder [Unknown]
  - Escherichia infection [Not Recovered/Not Resolved]
  - Tachycardia [Unknown]
  - Memory impairment [Unknown]
  - Headache [Unknown]
  - Disturbance in attention [Unknown]
  - Erythema [Unknown]
  - Hypertension [Unknown]
  - Speech disorder [Unknown]
  - Insomnia [Unknown]

NARRATIVE: CASE EVENT DATE: 2016
